FAERS Safety Report 8037195-7 (Version None)
Quarter: 2012Q1

REPORT INFORMATION
  Report Type: 
  Country: None (occurrence: None)
  Receive Date: 20120111
  Receipt Date: 20120110
  Transmission Date: 20120608
  Serious: Yes (Other)
  Sender: FDA-Public Use
  Company Number: US-ROCHE-784599

PATIENT
  Sex: Male
  Weight: 81.72 kg

DRUGS (4)
  1. ACCUTANE [Suspect]
     Dates: start: 19890201, end: 19890401
  2. ACCUTANE [Suspect]
     Dates: start: 19881001, end: 19890101
  3. ACCUTANE [Suspect]
     Dates: start: 19880801, end: 19881001
  4. ACCUTANE [Suspect]
     Indication: ACNE
     Route: 065

REACTIONS (3)
  - COLITIS ULCERATIVE [None]
  - POUCHITIS [None]
  - INFLAMMATORY BOWEL DISEASE [None]
